FAERS Safety Report 9456313 (Version 6)
Quarter: 2015Q1

REPORT INFORMATION
  Report Type: Spontaneous
  Country: US (occurrence: US)
  Receive Date: 20130813
  Receipt Date: 20150325
  Transmission Date: 20150721
  Serious: Yes (Hospitalization, Other)
  Sender: FDA-Public Use
  Company Number: US-GLAXOSMITHKLINE-A1037370A

PATIENT
  Age: 51 Year
  Sex: Female

DRUGS (7)
  1. FLOLAN [Suspect]
     Active Substance: EPOPROSTENOL SODIUM
     Indication: PULMONARY ARTERIAL HYPERTENSION
     Dosage: 50-61 NG/KG/MIN CONTINUOUSLY (CONCENTRATION 60,000 NG/ML; 1.5 MG VIAL STRENGTH)55 NG/KG/MIN, 60[...]
     Route: 042
     Dates: start: 20070817
  2. LETAIRIS [Concomitant]
     Active Substance: AMBRISENTAN
  3. FLOLAN [Suspect]
     Active Substance: EPOPROSTENOL SODIUM
     Dosage: 56NG/KG/MIN, 1.5MG VIAL STRENGTH, 60,000NG/ML CONCENTRATION, 94ML/DAY PUMP RATE
  4. FLOLAN [Suspect]
     Active Substance: EPOPROSTENOL SODIUM
     Indication: COR PULMONALE CHRONIC
     Dosage: UNK
  5. FLOLAN [Suspect]
     Active Substance: EPOPROSTENOL SODIUM
     Dosage: UNK
  6. COUMADIN [Concomitant]
     Active Substance: WARFARIN SODIUM
  7. FLOLAN [Suspect]
     Active Substance: EPOPROSTENOL SODIUM
     Dosage: UNK

REACTIONS (4)
  - Lung transplant [Unknown]
  - Gastroenteritis viral [Unknown]
  - Palpitations [Unknown]
  - Hospitalisation [Unknown]

NARRATIVE: CASE EVENT DATE: 2013
